FAERS Safety Report 9392278 (Version 2)
Quarter: 2013Q4

REPORT INFORMATION
  Report Type: Spontaneous
  Country: IE (occurrence: IE)
  Receive Date: 20130710
  Receipt Date: 20131010
  Transmission Date: 20140711
  Serious: Yes (Hospitalization)
  Sender: FDA-Public Use
  Company Number: IE-JNJFOC-20130703615

PATIENT
  Age: 2 Year
  Sex: Female
  Weight: 13.9 kg

DRUGS (2)
  1. CALPOL [Suspect]
     Route: 048
  2. CALPOL [Suspect]
     Indication: OVERDOSE
     Route: 048
     Dates: start: 20130509

REACTIONS (2)
  - Accidental exposure to product [Recovered/Resolved]
  - Overdose [Recovered/Resolved]
